FAERS Safety Report 8130715-3 (Version None)
Quarter: 2012Q1

REPORT INFORMATION
  Report Type: 
  Country: None (occurrence: None)
  Receive Date: 20120213
  Receipt Date: 20120201
  Transmission Date: 20120608
  Serious: No
  Sender: FDA-Public Use
  Company Number: US-BIOGENIDEC-2012BI004299

PATIENT
  Age: 34 Year
  Sex: Female

DRUGS (3)
  1. TYSABRI [Suspect]
     Indication: MULTIPLE SCLEROSIS
     Route: 042
     Dates: start: 20111220
  2. TRAMADOL HCL [Concomitant]
     Indication: ARTHRALGIA
  3. TRAMADOL HCL [Concomitant]
     Indication: MYALGIA

REACTIONS (3)
  - INCREASED TENDENCY TO BRUISE [None]
  - MYALGIA [None]
  - ARTHRALGIA [None]
